FAERS Safety Report 8424083-7 (Version None)
Quarter: 2012Q2

REPORT INFORMATION
  Report Type: 
  Country: None (occurrence: None)
  Receive Date: 20120608
  Receipt Date: 20110822
  Transmission Date: 20120825
  Serious: No
  Sender: FDA-Public Use
  Company Number: US-ASTRAZENECA-2011SE18420

PATIENT
  Sex: Female
  Weight: 85.3 kg

DRUGS (14)
  1. GABAPENTIN [Concomitant]
     Dosage: 900 MG IN THE P.M.
  2. PRILOSEC [Suspect]
     Dosage: 20 MG DAILY OR TWICE A DAY
     Route: 048
  3. METOPROLOL [Suspect]
     Route: 048
  4. CLARITIN [Concomitant]
  5. VITAMIN B-12 [Concomitant]
  6. VITAMIN D [Concomitant]
  7. O2 [Concomitant]
     Dosage: AT NIGHT AND EVENING
  8. ARTIFICIAL TEARS [Concomitant]
     Dosage: AS NEEDED
  9. TRAMADOL HYDROCHLORIDE AND ACETAMINOPHEN [Concomitant]
     Dosage: TWO TABLETS AT NIGHT
     Route: 048
  10. PROVENTIL [Concomitant]
     Dosage: TWO PUFFS AS NEEDED
  11. EYE DROPS [Concomitant]
     Dosage: AS NEEDED
  12. TRAMADOL HCL [Concomitant]
     Dosage: 50 MG IN THE P.M.
  13. PULMICORT [Suspect]
     Indication: ASTHMA
     Route: 055
  14. SYMBICORT [Suspect]
     Dosage: 160/4.5 MCG FREQUENCY UNKNOWN
     Route: 055

REACTIONS (20)
  - ASTHMA [None]
  - DYSPNOEA [None]
  - ASTHENIA [None]
  - URINARY TRACT INFECTION [None]
  - SENSORY LOSS [None]
  - CHRONIC OBSTRUCTIVE PULMONARY DISEASE [None]
  - SINUSITIS [None]
  - DIARRHOEA [None]
  - TOOTHACHE [None]
  - FATIGUE [None]
  - HEART RATE INCREASED [None]
  - RHINITIS ALLERGIC [None]
  - HAEMATURIA [None]
  - GASTROOESOPHAGEAL REFLUX DISEASE [None]
  - ARTHRALGIA [None]
  - CONJUNCTIVITIS ALLERGIC [None]
  - DERMATITIS CONTACT [None]
  - CANDIDIASIS [None]
  - NASAL CONGESTION [None]
  - CONTUSION [None]
